FAERS Safety Report 12475296 (Version 4)
Quarter: 2016Q3

REPORT INFORMATION
  Report Type: Spontaneous
  Country: US (occurrence: US)
  Receive Date: 20160617
  Receipt Date: 20160818
  Transmission Date: 20161109
  Serious: Yes (Hospitalization, Other)
  Sender: FDA-Public Use
  Company Number: US-GLAXOSMITHKLINE-US2016085960

PATIENT
  Age: 61 Year
  Sex: Female

DRUGS (7)
  1. ADVAIR DISKUS [Suspect]
     Active Substance: FLUTICASONE PROPIONATE\SALMETEROL XINAFOATE
     Indication: ASTHMA
     Dosage: 1 PUFF(S), QD
     Route: 055
     Dates: start: 2006
  2. VITAMIN E [Concomitant]
     Active Substance: .ALPHA.-TOCOPHEROL
  3. SYNTHROID [Concomitant]
     Active Substance: LEVOTHYROXINE SODIUM
  4. CITRACAL WITH D [Concomitant]
  5. VIACTIV [Concomitant]
     Active Substance: CALCIUM\VITAMIN D\VITAMIN K5
  6. SINGULAIR [Concomitant]
     Active Substance: MONTELUKAST SODIUM
  7. COMBIVENT [Concomitant]
     Active Substance: ALBUTEROL SULFATE\IPRATROPIUM BROMIDE

REACTIONS (12)
  - Influenza [Recovered/Resolved]
  - Staphylococcal infection [Recovered/Resolved with Sequelae]
  - Lung abscess [Not Recovered/Not Resolved]
  - Wheezing [Recovering/Resolving]
  - Acute kidney injury [Unknown]
  - Pneumonia [Recovered/Resolved]
  - Drug interaction [Unknown]
  - Asthma [Recovering/Resolving]
  - Intentional underdose [Unknown]
  - Product quality issue [Unknown]
  - Device occlusion [Unknown]
  - Drug dose omission [Unknown]

NARRATIVE: CASE EVENT DATE: 2015
